FAERS Safety Report 25345244 (Version 2)
Quarter: 2025Q3

REPORT INFORMATION
  Report Type: Spontaneous
  Country: JP (occurrence: JP)
  Receive Date: 20250522
  Receipt Date: 20250924
  Transmission Date: 20251021
  Serious: Yes (Other)
  Sender: ASTELLAS
  Company Number: JP-ASTELLAS-2025-AER-027006

PATIENT
  Age: 5 Decade
  Sex: Male

DRUGS (11)
  1. VYLOY [Suspect]
     Active Substance: ZOLBETUXIMAB-CLZB
     Indication: Gastric cancer
     Route: 065
  2. VYLOY [Suspect]
     Active Substance: ZOLBETUXIMAB-CLZB
     Route: 065
     Dates: start: 202504
  3. VYLOY [Suspect]
     Active Substance: ZOLBETUXIMAB-CLZB
     Route: 065
     Dates: start: 202509
  4. OLANZAPINE [Suspect]
     Active Substance: OLANZAPINE
     Indication: Product used for unknown indication
     Route: 065
  5. OLANZAPINE [Suspect]
     Active Substance: OLANZAPINE
     Route: 065
  6. OXALIPLATIN [Suspect]
     Active Substance: OXALIPLATIN
     Indication: Gastric cancer
     Route: 065
     Dates: start: 202504
  7. OXALIPLATIN [Suspect]
     Active Substance: OXALIPLATIN
     Route: 065
  8. CAPECITABINE [Concomitant]
     Active Substance: CAPECITABINE
     Indication: Gastric cancer
     Route: 065
     Dates: start: 202504
  9. CAPECITABINE [Concomitant]
     Active Substance: CAPECITABINE
     Route: 065
  10. CAPECITABINE [Concomitant]
     Active Substance: CAPECITABINE
     Route: 065
     Dates: start: 202509
  11. PRIMPERAN [Concomitant]
     Active Substance: METOCLOPRAMIDE HYDROCHLORIDE
     Indication: Nausea
     Route: 065

REACTIONS (3)
  - Diabetes mellitus [Unknown]
  - Neuropathy peripheral [Not Recovered/Not Resolved]
  - Off label use [Unknown]

NARRATIVE: CASE EVENT DATE: 20250401
